FAERS Safety Report 25320216 (Version 1)
Quarter: 2025Q2

REPORT INFORMATION
  Report Type: Spontaneous
  Country: US (occurrence: None)
  Receive Date: 20250515
  Receipt Date: 20250515
  Transmission Date: 20250716
  Serious: No
  Sender: FDA-CTU
  Company Number: None

PATIENT
  Sex: Female

DRUGS (2)
  1. LYNPARZA [Suspect]
     Active Substance: OLAPARIB
     Indication: Breast cancer
     Dates: start: 20250111, end: 20250512
  2. LYNPARZA [Concomitant]
     Active Substance: OLAPARIB
     Dates: start: 20250111, end: 20250512

REACTIONS (2)
  - Nausea [None]
  - Depression [None]
